FAERS Safety Report 5368895-5 (Version None)
Quarter: 2007Q2

REPORT INFORMATION
  Report Type: 
  Country: None (occurrence: None)
  Receive Date: 20070625
  Receipt Date: 20061107
  Transmission Date: 20071010
  Serious: No
  Sender: FDA-Public Use
  Company Number: US-ASTRAZENECA-2006UW22324

PATIENT
  Age: 62 Year
  Sex: Female
  Weight: 131.5 kg

DRUGS (5)
  1. CRESTOR [Suspect]
     Indication: BLOOD CHOLESTEROL INCREASED
     Route: 048
     Dates: start: 20060101
  2. INSULIN [Concomitant]
  3. WELLBUTRIN [Concomitant]
  4. LISINOPRIL [Concomitant]
  5. DILTIAZEM [Concomitant]

REACTIONS (1)
  - ALOPECIA [None]
